FAERS Safety Report 21513109 (Version 3)
Quarter: 2023Q2

REPORT INFORMATION
  Report Type: Other
  Country: DE (occurrence: None)
  Receive Date: 20221027
  Receipt Date: 20230406
  Transmission Date: 20230722
  Serious: Yes (Hospitalization, Other)
  Sender: FDA-Public Use
  Company Number: DE-ROCHE-2724759

PATIENT
  Age: 48 Year
  Sex: Female

DRUGS (6)
  1. OCREVUS [Suspect]
     Active Substance: OCRELIZUMAB
     Indication: Relapsing-remitting multiple sclerosis
     Route: 042
  2. OCREVUS [Suspect]
     Active Substance: OCRELIZUMAB
     Route: 042
     Dates: start: 20181101
  3. OCREVUS [Suspect]
     Active Substance: OCRELIZUMAB
     Route: 042
     Dates: start: 20200527
  4. COMIRNATY [Suspect]
     Active Substance: TOZINAMERAN
     Indication: Product used for unknown indication
     Route: 065
     Dates: start: 20211008
  5. LUMIGAN [Concomitant]
     Active Substance: BIMATOPROST
  6. GABAPENTIN [Concomitant]
     Active Substance: GABAPENTIN

REACTIONS (22)
  - Optic neuritis [Unknown]
  - Multiple sclerosis pseudo relapse [Recovered/Resolved]
  - Sensory disturbance [Recovering/Resolving]
  - Incontinence [Recovered/Resolved]
  - Fatigue [Recovering/Resolving]
  - Visual impairment [Not Recovered/Not Resolved]
  - Paraesthesia [Not Recovered/Not Resolved]
  - Sciatica [Recovered/Resolved]
  - Muscle spasticity [Recovered/Resolved]
  - Parosmia [Unknown]
  - COVID-19 [Recovered/Resolved]
  - Cough [Recovered/Resolved]
  - Aphasia [Recovering/Resolving]
  - Pain in extremity [Not Recovered/Not Resolved]
  - Mental disorder [Recovered/Resolved]
  - Cystitis noninfective [Not Recovered/Not Resolved]
  - Influenza like illness [Recovered/Resolved]
  - Depressed mood [Not Recovered/Not Resolved]
  - Oropharyngeal pain [Recovered/Resolved]
  - Throat tightness [Recovered/Resolved]
  - Muscular weakness [Not Recovered/Not Resolved]
  - Gait disturbance [Not Recovered/Not Resolved]

NARRATIVE: CASE EVENT DATE: 20190101
